FAERS Safety Report 6623966-8 (Version None)
Quarter: 2010Q1

REPORT INFORMATION
  Report Type: 
  Country: None (occurrence: None)
  Receive Date: 20100310
  Receipt Date: 20100225
  Transmission Date: 20100710
  Serious: Yes (Life-Threatening, Other)
  Sender: FDA-Public Use
  Company Number: RO-GENZYME-RENA-1000603

PATIENT
  Sex: Male

DRUGS (18)
  1. RENAGEL [Suspect]
     Indication: HYPERPHOSPHATAEMIA
     Dosage: 2.4 G, BID
     Route: 048
     Dates: start: 20090301, end: 20090501
  2. RENAGEL [Suspect]
     Indication: RENAL FAILURE CHRONIC
     Dosage: 2.4 G, TID
     Route: 048
     Dates: start: 20090501, end: 20090801
  3. RENAGEL [Suspect]
     Indication: HAEMODIALYSIS
     Dosage: 2.4 G, TID
     Route: 048
     Dates: start: 20090801, end: 20090901
  4. RENAGEL [Suspect]
     Indication: HYPERPARATHYROIDISM SECONDARY
     Dosage: 2.4 G, TID
     Route: 048
     Dates: start: 20090901, end: 20091001
  5. RENAGEL [Suspect]
     Dosage: 8.0 G, QD
     Route: 048
     Dates: start: 20091001, end: 20091201
  6. RENAGEL [Suspect]
     Dosage: 2.4 G, TID
     Route: 048
     Dates: start: 20091201
  7. NEUROHORMON [Concomitant]
     Indication: DRUG USE FOR UNKNOWN INDICATION
     Dosage: 16000 U, 1X/W
     Route: 065
  8. VENOFER [Concomitant]
     Indication: DRUG USE FOR UNKNOWN INDICATION
     Dosage: 2 UNK, 2X/W
     Route: 065
  9. PREDUCTAL [Concomitant]
     Indication: DRUG USE FOR UNKNOWN INDICATION
     Dosage: 70 MG, QD
     Route: 065
  10. EGILOK [Concomitant]
     Indication: DRUG USE FOR UNKNOWN INDICATION
     Dosage: 50 MG, QD
     Route: 065
  11. GABORAN [Concomitant]
     Indication: DRUG USE FOR UNKNOWN INDICATION
     Dosage: 600 MG, QD
     Route: 065
  12. PENTOXIFYLLINE [Concomitant]
     Indication: DRUG USE FOR UNKNOWN INDICATION
     Dosage: 1200 MG, QD
     Route: 065
  13. ASPENTER [Concomitant]
     Indication: DRUG USE FOR UNKNOWN INDICATION
     Dosage: 75 MG, QD
  14. MONONITRON [Concomitant]
     Indication: DRUG USE FOR UNKNOWN INDICATION
     Dosage: 120 MG, QD
     Route: 065
  15. SERMION [Concomitant]
     Indication: DRUG USE FOR UNKNOWN INDICATION
     Dosage: 30 MG, QD
     Route: 065
  16. FOLIC ACID [Concomitant]
     Indication: DRUG USE FOR UNKNOWN INDICATION
     Dosage: 15 MG, QD
     Route: 065
  17. APROVEL [Concomitant]
     Indication: DRUG USE FOR UNKNOWN INDICATION
     Dosage: 75 MG, QD
     Route: 065
  18. PLAVIX [Concomitant]
     Indication: DRUG USE FOR UNKNOWN INDICATION
     Dosage: 75 MG, QD
     Route: 065

REACTIONS (5)
  - BONE PAIN [None]
  - CALCIFICATION METASTATIC [None]
  - HYPERPARATHYROIDISM [None]
  - HYPERPHOSPHATAEMIA [None]
  - VASCULAR CALCIFICATION [None]
